FAERS Safety Report 10370822 (Version 1)
Quarter: 2014Q3

REPORT INFORMATION
  Report Type: Spontaneous
  Country: US (occurrence: None)
  Receive Date: 20140806
  Receipt Date: 20140806
  Transmission Date: 20150326
  Serious: Yes (Congenital Anomaly, Other)
  Sender: FDA-Public Use
  Company Number: 2014AP003799

PATIENT
  Age: 0 Day
  Sex: Female
  Weight: 1.32 kg

DRUGS (1)
  1. PAXIL [Suspect]
     Active Substance: PAROXETINE HYDROCHLORIDE
     Dates: start: 200111, end: 200301

REACTIONS (4)
  - Aortic valve incompetence [None]
  - Bicuspid aortic valve [None]
  - Foetal exposure during pregnancy [None]
  - Maternal drugs affecting foetus [None]

NARRATIVE: CASE EVENT DATE: 20030116
